FAERS Safety Report 4400919-1 (Version None)
Quarter: 2004Q3

REPORT INFORMATION
  Report Type: 
  Country: None (occurrence: None)
  Receive Date: 20040907
  Receipt Date: 20030811
  Transmission Date: 20050211
  Serious: No
  Sender: FDA-Public Use
  Company Number: US-BRISTOL-MYERS SQUIBB COMPANY-12351235

PATIENT
  Age: 76 Year
  Sex: Female
  Weight: 82 kg

DRUGS (3)
  1. COUMADIN [Suspect]
     Indication: THROMBOSIS
     Dosage: DOSAGE: ONE 5MG TAB ALTERNATING WITH 1/2 TAB (2.5 MG) DAILY.
     Route: 048
  2. SYNTHROID [Concomitant]
  3. SULAR [Concomitant]

REACTIONS (1)
  - ALOPECIA [None]
